FAERS Safety Report 21726894 (Version 1)
Quarter: 2022Q4

REPORT INFORMATION
  Report Type: Spontaneous
  Country: US (occurrence: None)
  Receive Date: 20221213
  Receipt Date: 20221213
  Transmission Date: 20230113
  Serious: Yes (Life-Threatening, Disabling, Other)
  Sender: FDA-Public Use
  Company Number: None

PATIENT
  Age: 38 Year
  Sex: Female
  Weight: 58.5 kg

DRUGS (10)
  1. AMPHETAMINE\DEXTROAMPHETAMINE [Suspect]
     Active Substance: AMPHETAMINE\DEXTROAMPHETAMINE
     Indication: Attention deficit hyperactivity disorder
     Dosage: OTHER QUANTITY : 60 TABLET(S);?FREQUENCY : EVERY 4 HOURS;?
     Route: 048
     Dates: start: 20220101
  2. AMPHETAMINE\DEXTROAMPHETAMINE [Suspect]
     Active Substance: AMPHETAMINE\DEXTROAMPHETAMINE
     Indication: Depression
  3. AMPHETAMINE\DEXTROAMPHETAMINE [Suspect]
     Active Substance: AMPHETAMINE\DEXTROAMPHETAMINE
     Indication: Fatigue
  4. 10mg Dextroamphetamine [Concomitant]
  5. Kachava Meal Supplement Organic Matcha  Probiotic  1200mg [Concomitant]
  6. Fish Oil  1000mg [Concomitant]
  7. Tumeric  240mg [Concomitant]
  8. Magnesium  2500mcg [Concomitant]
  9. B-12  50mg [Concomitant]
  10. ZINC [Concomitant]
     Active Substance: ZINC

REACTIONS (11)
  - Agitation [None]
  - Anger [None]
  - Confusional state [None]
  - Anxiety [None]
  - Fatigue [None]
  - Depression [None]
  - Migraine [None]
  - Migraine postdrome [None]
  - Impaired driving ability [None]
  - Impaired work ability [None]
  - Job dissatisfaction [None]

NARRATIVE: CASE EVENT DATE: 20221212
